FAERS Safety Report 6149462-2 (Version None)
Quarter: 2009Q2

REPORT INFORMATION
  Report Type: 
  Country: None (occurrence: None)
  Receive Date: 20090409
  Receipt Date: 20090406
  Transmission Date: 20091009
  Serious: Yes (Hospitalization)
  Sender: FDA-Public Use
  Company Number: ES-BAYER-200918024GPV

PATIENT
  Age: 55 Year
  Sex: Female

DRUGS (6)
  1. ADIRO [Suspect]
     Indication: DRUG USE FOR UNKNOWN INDICATION
     Dosage: TOTAL DAILY DOSE: 100 MG  UNIT DOSE: 100 MG
     Route: 048
     Dates: start: 20071201
  2. INDOMETHACIN [Interacting]
     Indication: DRUG USE FOR UNKNOWN INDICATION
     Route: 048
     Dates: start: 20060101, end: 20061013
  3. INDOMETHACIN [Interacting]
     Route: 048
     Dates: start: 20080101, end: 20080101
  4. ENALAPRIL [Interacting]
     Indication: DRUG USE FOR UNKNOWN INDICATION
     Route: 048
     Dates: start: 20070101
  5. METHOTREXATE [Interacting]
     Indication: RHEUMATOID ARTHRITIS
     Dosage: TOTAL DAILY DOSE: 12.5 MG  UNIT DOSE: 12.5 MG
     Route: 048
     Dates: start: 20020226, end: 20050201
  6. METHOTREXATE [Interacting]
     Dosage: TOTAL DAILY DOSE: 15 MG  UNIT DOSE: 15 MG
     Route: 048
     Dates: start: 20050201, end: 20080304

REACTIONS (1)
  - ACUTE PRERENAL FAILURE [None]
